FAERS Safety Report 5020062-0 (Version None)
Quarter: 2006Q2

REPORT INFORMATION
  Report Type: 
  Country: None (occurrence: None)
  Receive Date: 20060607
  Receipt Date: 20060508
  Transmission Date: 20061013
  Serious: Yes (Hospitalization)
  Sender: FDA-Public Use
  Company Number: 446516

PATIENT
  Age: 67 Year
  Sex: Female

DRUGS (8)
  1. ARTIST [Suspect]
     Route: 048
     Dates: start: 20051123
  2. PANALDINE [Suspect]
     Indication: THROMBOSIS PROPHYLAXIS
     Dosage: 100MG TWICE PER DAY
     Route: 048
     Dates: start: 20051015, end: 20060420
  3. RENIVEZE [Suspect]
     Indication: HYPERTENSION
     Dosage: 2.5MG PER DAY
     Route: 048
     Dates: start: 20051126, end: 20060411
  4. PLETAL [Concomitant]
     Indication: THROMBOSIS PROPHYLAXIS
     Route: 065
     Dates: start: 20060420
  5. LASIX [Concomitant]
     Indication: DRUG USE FOR UNKNOWN INDICATION
     Route: 065
     Dates: start: 20051127
  6. ASPIRIN [Concomitant]
  7. BASEN [Concomitant]
     Dates: start: 20060301, end: 20060411
  8. MELBIN [Concomitant]
     Dates: start: 20060301, end: 20060411

REACTIONS (3)
  - BLOOD ALKALINE PHOSPHATASE INCREASED [None]
  - HEPATIC ENZYME INCREASED [None]
  - LIVER DISORDER [None]
